FAERS Safety Report 13770488 (Version 1)
Quarter: 2017Q3

REPORT INFORMATION
  Report Type: Spontaneous
  Country: US (occurrence: US)
  Receive Date: 20170720
  Receipt Date: 20170720
  Transmission Date: 20171127
  Serious: Yes (Other)
  Sender: FDA-Public Use
  Company Number: None

PATIENT
  Age: 79 Year
  Sex: Female
  Weight: 88.91 kg

DRUGS (17)
  1. HYDRALAZINE 25MG [Suspect]
     Active Substance: HYDRALAZINE HYDROCHLORIDE
     Indication: HYPERTENSION
     Route: 048
     Dates: start: 20170515, end: 20170606
  2. SYNTHROID [Concomitant]
     Active Substance: LEVOTHYROXINE SODIUM
  3. COLCHICINE. [Concomitant]
     Active Substance: COLCHICINE
  4. TRITINOINE CREAM [Concomitant]
  5. LIMBRELL (FLAVOCOXID) [Concomitant]
  6. AMLODIPINE [Concomitant]
     Active Substance: AMLODIPINE BESYLATE
  7. LABETALOL [Concomitant]
     Active Substance: LABETALOL\LABETALOL HYDROCHLORIDE
  8. GLIMEPIRIDE. [Concomitant]
     Active Substance: GLIMEPIRIDE
  9. CLOPIDOGREL [Concomitant]
     Active Substance: CLOPIDOGREL BISULFATE
  10. PHILLIPS GOOD FIBER GUMMIES [Concomitant]
  11. CLINDAMYCIN PHOSPHATE. [Concomitant]
     Active Substance: CLINDAMYCIN PHOSPHATE
  12. LOSARTAN. [Concomitant]
     Active Substance: LOSARTAN
  13. PRAVASTATIN. [Concomitant]
     Active Substance: PRAVASTATIN
  14. POTASSIUM CL ER [Concomitant]
     Active Substance: POTASSIUM CHLORIDE
  15. FOLTANX [Concomitant]
  16. ALLOPURINOL. [Concomitant]
     Active Substance: ALLOPURINOL
  17. VITAMIN D [Concomitant]
     Active Substance: CHOLECALCIFEROL

REACTIONS (3)
  - Headache [None]
  - Palpitations [None]
  - Pruritus [None]

NARRATIVE: CASE EVENT DATE: 20170601
